FAERS Safety Report 10778828 (Version 3)
Quarter: 2015Q2

REPORT INFORMATION
  Report Type: Report from Study
  Country: AT (occurrence: AT)
  Receive Date: 20150210
  Receipt Date: 20150421
  Transmission Date: 20150821
  Serious: Yes (Hospitalization)
  Sender: FDA-Public Use
  Company Number: AT-AMGEN-AUTCT2014102620

PATIENT
  Age: 71 Year
  Sex: Female

DRUGS (15)
  1. ETANERCEPT [Suspect]
     Active Substance: ETANERCEPT
     Indication: RHEUMATOID ARTHRITIS
     Dosage: 50 MG, WEEKLY (LAST DOSE PRIOR TO SAE 30OCT2014)
     Route: 058
     Dates: end: 20141030
  2. LORNOXICAM [Concomitant]
     Active Substance: LORNOXICAM
     Indication: RHEUMATOID ARTHRITIS
     Dosage: 8 MG, 2X/DAY
     Route: 048
     Dates: start: 20090821, end: 20121011
  3. PARACETAMOL [Concomitant]
     Active Substance: ACETAMINOPHEN
     Indication: HERPES ZOSTER
     Dosage: 1000 MG, 1X/DAY
     Route: 042
     Dates: start: 20130102, end: 20130113
  4. LORNOXICAM [Concomitant]
     Active Substance: LORNOXICAM
     Dosage: 8 MG, 2X/DAY
     Route: 048
     Dates: start: 20121012, end: 20121031
  5. OMEPRAZOLE. [Concomitant]
     Active Substance: OMEPRAZOLE
     Dosage: 40 MG, 1X/DAY
     Route: 048
     Dates: start: 20090821
  6. CALCIUM [Concomitant]
     Active Substance: CALCIUM
     Dosage: UNK
  7. SULFASALAZINE DELAYED-RELEASE [Concomitant]
     Active Substance: SULFASALAZINE
     Indication: RHEUMATOID ARTHRITIS
     Dosage: 3000 MG, 1X/DAY
     Route: 048
     Dates: start: 20140712
  8. PREDNISOLONE. [Concomitant]
     Active Substance: PREDNISOLONE
     Indication: RHEUMATOID ARTHRITIS
     Dosage: 5 MG, AS NEEDED
     Route: 048
     Dates: start: 20120801, end: 20120807
  9. BANEOCIN                           /00037701/ [Concomitant]
     Indication: HERPES ZOSTER
     Dosage: UNK, 3X/DAY
     Route: 062
     Dates: start: 20130102, end: 20130107
  10. ACICLOVIR [Concomitant]
     Active Substance: ACYCLOVIR
     Indication: HERPES ZOSTER
     Dosage: 100 MG, 3X/DAY
     Route: 048
     Dates: start: 20130114, end: 20130224
  11. ACICLOVIR [Concomitant]
     Active Substance: ACYCLOVIR
     Dosage: 100 MG, 2X/DAY
     Route: 048
     Dates: start: 20130225, end: 20130310
  12. ACICLOVIR [Concomitant]
     Active Substance: ACYCLOVIR
     Dosage: 250 MG, 3X/DAY
     Route: 042
     Dates: start: 20130102, end: 20130107
  13. LORNOXICAM [Concomitant]
     Active Substance: LORNOXICAM
     Dosage: 8 MG, AS NEEDED
     Route: 048
     Dates: start: 20121101
  14. PREDNISOLONE. [Concomitant]
     Active Substance: PREDNISOLONE
     Indication: ERYTHEMA MULTIFORME
     Dosage: 2.5 MG, 1X/DAY
     Route: 048
     Dates: start: 20120808, end: 20121011
  15. FOLIC ACID. [Concomitant]
     Active Substance: FOLIC ACID
     Dosage: 5 MG, 2X/WEEK
     Route: 048

REACTIONS (1)
  - Dermatitis [Recovered/Resolved]

NARRATIVE: CASE EVENT DATE: 20141106
